FAERS Safety Report 14317110 (Version 1)
Quarter: 2017Q4

REPORT INFORMATION
  Report Type: Spontaneous
  Country: CH (occurrence: CH)
  Receive Date: 20171222
  Receipt Date: 20171222
  Transmission Date: 20180321
  Serious: Yes (Other)
  Sender: FDA-Public Use
  Company Number: CH-ROCHE-2041251

PATIENT
  Age: 81 Year
  Sex: Female

DRUGS (22)
  1. IMUREK [Concomitant]
     Active Substance: AZATHIOPRINE
     Route: 065
  2. TEMGESIC [Suspect]
     Active Substance: BUPRENORPHINE HYDROCHLORIDE
     Indication: MYALGIA
     Dosage: UNSPECIFIED
     Route: 060
     Dates: start: 20171028, end: 20171028
  3. REQUIP [Concomitant]
     Active Substance: ROPINIROLE HYDROCHLORIDE
     Route: 065
  4. CIPROFLOXACINE [Concomitant]
     Active Substance: CIPROFLOXACIN
     Route: 065
     Dates: start: 20171007, end: 20171008
  5. CO-AMOXI [Concomitant]
     Active Substance: AMOXICILLIN\CLAVULANATE POTASSIUM
     Route: 065
     Dates: start: 20171020, end: 20171021
  6. MABTHERA [Concomitant]
     Active Substance: RITUXIMAB
     Dosage: UNSPECIFIED
     Route: 065
     Dates: start: 20171114, end: 20171114
  7. ASPIRIN CARDIO [Concomitant]
     Active Substance: ASPIRIN
     Route: 065
  8. NEXIUM [Concomitant]
     Active Substance: ESOMEPRAZOLE MAGNESIUM
     Route: 065
     Dates: end: 20171116
  9. DAFALGAN [Concomitant]
     Active Substance: ACETAMINOPHEN
     Route: 065
  10. TORASEMIDE [Suspect]
     Active Substance: TORSEMIDE
     Indication: HYPERTENSION
     Dosage: UNSPECIFIED
     Route: 048
     Dates: start: 20171028
  11. VALIUM [Suspect]
     Active Substance: DIAZEPAM
     Indication: MYALGIA
     Dosage: UNSPECIFIED
     Route: 048
     Dates: start: 20171028, end: 20171028
  12. RISPERDAL [Suspect]
     Active Substance: RISPERIDONE
     Indication: AGITATION
     Dosage: UNSPECIFIED
     Route: 048
     Dates: start: 20171028, end: 20171113
  13. CALCIMAGON D3 [Concomitant]
     Active Substance: CALCIUM\CHOLECALCIFEROL
     Route: 065
  14. PREGABALIN. [Concomitant]
     Active Substance: PREGABALIN
     Route: 065
  15. NITROGLYCERINE [Suspect]
     Active Substance: NITROGLYCERIN
     Indication: CARDIAC FAILURE ACUTE
     Dosage: UNSPECIFIED
     Route: 040
     Dates: start: 20171028, end: 20171028
  16. ATORVASTATINE [Concomitant]
     Active Substance: ATORVASTATIN
     Route: 065
  17. BELOC ZOK [Concomitant]
     Active Substance: METOPROLOL SUCCINATE
     Route: 065
  18. LISINOPRIL. [Suspect]
     Active Substance: LISINOPRIL
     Indication: HYPERTENSION
     Dosage: UNSPECIFIED
     Route: 048
     Dates: start: 20171028, end: 20171030
  19. CIRCADIN [Concomitant]
     Active Substance: MELATONIN
     Route: 065
     Dates: start: 20171005
  20. CLEXANE [Concomitant]
     Active Substance: ENOXAPARIN SODIUM
     Route: 065
     Dates: start: 20171002, end: 20171004
  21. SINTROM [Concomitant]
     Active Substance: ACENOCOUMAROL
     Route: 065
     Dates: start: 20171001
  22. LAXOBERON [Concomitant]
     Active Substance: SODIUM PICOSULFATE
     Route: 065

REACTIONS (3)
  - Acute kidney injury [Recovered/Resolved]
  - Parkinsonism [Recovered/Resolved]
  - Disturbance in attention [Recovered/Resolved]

NARRATIVE: CASE EVENT DATE: 20171028
